FAERS Safety Report 6259276 (Version 15)
Quarter: 2013Q3

REPORT INFORMATION
  Report Type: Spontaneous
  Country: US (occurrence: US)
  Receive Date: 20070312
  Receipt Date: 20130702
  Transmission Date: 20140515
  Serious: Yes (Hospitalization, Other)
  Sender: FDA-Public Use
  Company Number: US-ROCHE-460922

PATIENT
  Age: 62 Year
  Sex: Female
  Weight: 66.7 kg

DRUGS (1)
  1. ACCUTANE [Suspect]
     Indication: ACNE
     Dosage: TOOK IN 1982 FOR 6-12 MONTHS.
     Route: 048

REACTIONS (29)
  - Calculus ureteric [Unknown]
  - Pneumonia [Unknown]
  - Colitis ulcerative [Unknown]
  - Inflammatory bowel disease [Unknown]
  - Gastrointestinal haemorrhage [Unknown]
  - Venous thrombosis [Unknown]
  - Deep vein thrombosis [Not Recovered/Not Resolved]
  - Proctitis [Unknown]
  - Colitis [Unknown]
  - Colitis [Unknown]
  - Colitis [Unknown]
  - Cervical polyp [Unknown]
  - Vaginal polyp [Unknown]
  - Bartholin^s abscess [Unknown]
  - Dysfunctional uterine bleeding [Unknown]
  - Arthritis [Unknown]
  - Nephrolithiasis [Unknown]
  - Injury [Unknown]
  - Pulmonary mass [Unknown]
  - Hepatic cyst [Unknown]
  - Blepharitis [Unknown]
  - Back pain [Unknown]
  - Anaemia [Unknown]
  - Osteopenia [Unknown]
  - Anxiety [Unknown]
  - Colitis [Unknown]
  - Hydronephrosis [Unknown]
  - Hydroureter [Unknown]
  - Osteoporosis [Unknown]
